FAERS Safety Report 5407418-9 (Version None)
Quarter: 2007Q3

REPORT INFORMATION
  Report Type: 
  Country: None (occurrence: None)
  Receive Date: 20070801
  Receipt Date: 20070730
  Transmission Date: 20080115
  Serious: Yes (Death)
  Sender: FDA-Public Use
  Company Number: THQ2007A00693

PATIENT
  Age: 78 Year
  Sex: Male

DRUGS (9)
  1. PIOGLITAZONE HCL [Suspect]
     Indication: TYPE 2 DIABETES MELLITUS
     Dosage: 15 MG (15 MG, 1 IN 1 D), PER ORAL, 30 MG (30 MG, 1 IN 1 D) PER ORAL
     Route: 048
     Dates: start: 20031112, end: 20040830
  2. PIOGLITAZONE HCL [Suspect]
     Indication: TYPE 2 DIABETES MELLITUS
     Dosage: 15 MG (15 MG, 1 IN 1 D), PER ORAL, 30 MG (30 MG, 1 IN 1 D) PER ORAL
     Route: 048
     Dates: start: 20040831
  3. METOPROLOL SUCCINATE [Concomitant]
  4. IMIPRAMINE [Concomitant]
  5. GLICLAZIDE [Concomitant]
  6. ENALAPRIL MALEATE [Concomitant]
  7. METFORMIN HCL [Concomitant]
  8. MAGNESIUM OXIDE [Concomitant]
  9. TRENTAL [Concomitant]

REACTIONS (1)
  - RECTAL CANCER METASTATIC [None]
